FAERS Safety Report 9718066 (Version 1)
Quarter: 2013Q4

REPORT INFORMATION
  Report Type: Spontaneous
  Country: IT (occurrence: IT)
  Receive Date: 20131127
  Receipt Date: 20131127
  Transmission Date: 20140711
  Serious: No
  Sender: FDA-Public Use
  Company Number: IT-PFIZER INC-2013338739

PATIENT
  Age: 42 Year
  Sex: Female

DRUGS (1)
  1. TRIATEC [Suspect]
     Indication: HYPERTENSION
     Dosage: 1 DF, DAILY
     Route: 048
     Dates: start: 20121101, end: 20121122

REACTIONS (2)
  - Choking sensation [Recovered/Resolved]
  - Cough [Recovered/Resolved]
